FAERS Safety Report 9380888 (Version 4)
Quarter: 2013Q3

REPORT INFORMATION
  Report Type: Spontaneous
  Country: FR (occurrence: FR)
  Receive Date: 20130703
  Receipt Date: 20130709
  Transmission Date: 20140515
  Serious: Yes (Congenital Anomaly, Other)
  Sender: FDA-Public Use
  Company Number: FR-PFIZER INC-2013193681

PATIENT
  Sex: Female
  Weight: 2.86 kg

DRUGS (4)
  1. EFFEXOR LP [Suspect]
     Indication: DEPRESSION
     Dosage: 37.5 MG, 2X/DAY
     Route: 064
     Dates: start: 2012, end: 20130124
  2. EFFEXOR LP [Suspect]
     Indication: SOCIAL PHOBIA
  3. ATARAX [Suspect]
     Indication: SLEEP DISORDER
     Dosage: 25 MG DAILY, 1 DOSAGE FORM DAILY IN THE EVENING
     Route: 064
     Dates: end: 20130124
  4. GLUCOCORTICOIDS [Concomitant]
     Route: 064

REACTIONS (6)
  - Maternal exposure during pregnancy [Not Recovered/Not Resolved]
  - Limb reduction defect [Not Recovered/Not Resolved]
  - Foetal heart rate disorder [Unknown]
  - Foetal growth restriction [Unknown]
  - Foetal exposure during pregnancy [Recovered/Resolved]
  - Foetal cardiac disorder [Unknown]
